FAERS Safety Report 17405907 (Version 1)
Quarter: 2020Q1

REPORT INFORMATION
  Report Type: Spontaneous
  Country: US (occurrence: US)
  Receive Date: 20200128
  Receipt Date: 20200128
  Transmission Date: 20200409
  Serious: No
  Sender: FDA-Public Use
  Company Number: None

PATIENT
  Age: 56 Year
  Sex: Male
  Weight: 129.27 kg

DRUGS (1)
  1. DESVENLAFAXINE GENERIC SUCCINATE 50MG [Suspect]
     Active Substance: DESVENLAFAXINE SUCCINATE
     Indication: ANXIETY
     Route: 048
     Dates: start: 20191126, end: 20191222

REACTIONS (6)
  - Abdominal pain upper [None]
  - Tremor [None]
  - Dry mouth [None]
  - Flatulence [None]
  - Dizziness [None]
  - Urinary retention [None]

NARRATIVE: CASE EVENT DATE: 20191126
